FAERS Safety Report 9312125 (Version 1)
Quarter: 2013Q2

REPORT INFORMATION
  Report Type: Report from Study
  Country: BE (occurrence: BE)
  Receive Date: 20130528
  Receipt Date: 20130528
  Transmission Date: 20140414
  Serious: Yes (Hospitalization)
  Sender: FDA-Public Use
  Company Number: BE-BAXTER-2013BAX019149

PATIENT
  Age: 14 Year
  Sex: Male

DRUGS (2)
  1. FEIBA 500 U, POUDRE ET SOLVANT POUR SOLUTION INJECTABLE [Suspect]
     Indication: FACTOR VIII DEFICIENCY
     Route: 051
     Dates: start: 20120514
  2. FEIBA 500 U, POUDRE ET SOLVANT POUR SOLUTION INJECTABLE [Suspect]
     Route: 051
     Dates: start: 20130517, end: 20130517

REACTIONS (1)
  - Muscle haemorrhage [Not Recovered/Not Resolved]
